FAERS Safety Report 19324625 (Version 1)
Quarter: 2021Q2

REPORT INFORMATION
  Report Type: Spontaneous
  Country: CA (occurrence: CA)
  Receive Date: 20210528
  Receipt Date: 20210528
  Transmission Date: 20210717
  Serious: Yes (Death, Other)
  Sender: FDA-Public Use
  Company Number: CA-GLAXOSMITHKLINE-CA2021AMR072128

PATIENT
  Age: 63 Year
  Sex: Female

DRUGS (3)
  1. ZEJULA [Suspect]
     Active Substance: NIRAPARIB
     Indication: MALIGNANT PERITONEAL NEOPLASM
  2. ZEJULA [Suspect]
     Active Substance: NIRAPARIB
     Indication: OVARIAN EPITHELIAL CANCER RECURRENT
     Dosage: 200 MG, QD
     Route: 048
     Dates: start: 20210321, end: 20210325
  3. ZEJULA [Suspect]
     Active Substance: NIRAPARIB
     Indication: FALLOPIAN TUBE CANCER
     Dosage: 100 MG, QD
     Route: 048

REACTIONS (10)
  - Death [Fatal]
  - Dry mouth [Unknown]
  - Abdominal distension [Unknown]
  - Blood pressure increased [Not Recovered/Not Resolved]
  - Dehydration [Unknown]
  - Decreased appetite [Unknown]
  - Heart rate increased [Unknown]
  - Blood creatinine increased [Unknown]
  - Nausea [Not Recovered/Not Resolved]
  - Vomiting [Unknown]

NARRATIVE: CASE EVENT DATE: 202103
